FAERS Safety Report 22204753 (Version 2)
Quarter: 2023Q2

REPORT INFORMATION
  Report Type: Report from Study
  Country: CH (occurrence: CH)
  Receive Date: 20230413
  Receipt Date: 20230414
  Transmission Date: 20230721
  Serious: Yes (Death)
  Sender: FDA-Public Use
  Company Number: CH-ABBVIE-4725665

PATIENT
  Age: 58 Year
  Sex: Female

DRUGS (4)
  1. CARBIDOPA\LEVODOPA [Suspect]
     Active Substance: CARBIDOPA\LEVODOPA
     Indication: Parkinson^s disease
     Dosage: CASSETTES
     Route: 050
     Dates: start: 20210105, end: 20230411
  2. CARBIDOPA\LEVODOPA [Suspect]
     Active Substance: CARBIDOPA\LEVODOPA
     Dosage: MD 3.0ML, CRD 5.8 ML/H, ED 2.0ML; CRN 5.1ML/H
     Dates: start: 20230202, end: 20230411
  3. CARBIDOPA\LEVODOPA [Suspect]
     Active Substance: CARBIDOPA\LEVODOPA
     Dosage: MD 3.0ML, CRD 5.6 ML/H, ED 2.0ML; CRN 4.9ML/H
     Dates: start: 20221018, end: 20230202
  4. CARBIDOPA\LEVODOPA [Suspect]
     Active Substance: CARBIDOPA\LEVODOPA
     Dosage: MD 3.0ML, CRD 5.6 ML/H, ED 2.0ML; CRN 4.9ML/H
     Dates: start: 20220906, end: 20221018

REACTIONS (1)
  - Death [Fatal]

NARRATIVE: CASE EVENT DATE: 20230411
